FAERS Safety Report 23048548 (Version 1)
Quarter: 2023Q4

REPORT INFORMATION
  Report Type: Spontaneous
  Country: IN (occurrence: IN)
  Receive Date: 20231010
  Receipt Date: 20231010
  Transmission Date: 20240110
  Serious: Yes (Other)
  Sender: FDA-Public Use
  Company Number: IN-HETERO-HET2023IN02859

PATIENT
  Age: 55 Year
  Sex: Female

DRUGS (6)
  1. PREGABALIN [Suspect]
     Active Substance: PREGABALIN
     Indication: Back pain
     Dosage: 75 MILLIGRAM, Q.H.S.
     Route: 065
  2. PREGABALIN [Suspect]
     Active Substance: PREGABALIN
     Dosage: 75 MILLIGRAM, BID
     Route: 065
  3. PREGABALIN [Suspect]
     Active Substance: PREGABALIN
     Dosage: PREGABALIN WAS TAPERED DOWN DOSAGE OF 75 MILLIGRAM, Q.H.S.
     Route: 065
  4. ACECLOFENAC\PREGABALIN [Suspect]
     Active Substance: ACECLOFENAC\PREGABALIN
     Indication: Back pain
     Dosage: ACECLOFENAC (200 MG), PREGABALIN (75MG) Q.H.S.
     Route: 065
  5. ACECLOFENAC [Concomitant]
     Active Substance: ACECLOFENAC
     Indication: Back pain
     Dosage: 100 MILLIGRAM AS NEEDED BASIS
     Route: 065
  6. ACETAMINOPHEN [Concomitant]
     Active Substance: ACETAMINOPHEN
     Indication: Back pain
     Dosage: 325 MILLIGRAM AS NEEDED BASIS
     Route: 065

REACTIONS (3)
  - Drug dependence [Recovering/Resolving]
  - Withdrawal syndrome [Recovering/Resolving]
  - Treatment noncompliance [Unknown]
